FAERS Safety Report 8909375 (Version 2)
Quarter: 2012Q4

REPORT INFORMATION
  Report Type: 
  Country: JP (occurrence: JP)
  Receive Date: 20121114
  Receipt Date: 20121124
  Transmission Date: 20130627
  Serious: Yes (Other)
  Sender: FDA-Public Use
  Company Number: JP-009507513-1211JPN005069

PATIENT
  Age: 45 Year
  Sex: Male

DRUGS (5)
  1. FAMOTIDINE [Suspect]
     Route: 048
  2. VALPROIC ACID [Suspect]
     Route: 048
  3. SULFAMETHOXAZOLE (+) TRIMETHOPRIM [Suspect]
  4. TEMODAL [Concomitant]
     Dosage: 75 mg/m2, qd
     Route: 048
  5. PREDNISOLONE [Concomitant]
     Indication: BRAIN OEDEMA
     Dosage: 15 mg, qd

REACTIONS (3)
  - Drug-induced liver injury [Recovering/Resolving]
  - Aspartate aminotransferase increased [None]
  - Alanine aminotransferase increased [None]
